FAERS Safety Report 5037166-9 (Version None)
Quarter: 2006Q2

REPORT INFORMATION
  Report Type: 
  Country: None (occurrence: None)
  Receive Date: 20060628
  Receipt Date: 20060619
  Transmission Date: 20061013
  Serious: Yes (Death, Hospitalization, Other)
  Sender: FDA-Public Use
  Company Number: NSADSS2003004661

PATIENT
  Sex: Female
  Weight: 53.52 kg

DRUGS (23)
  1. REMICADE [Suspect]
     Route: 041
  2. REMICADE [Suspect]
     Route: 041
  3. REMICADE [Suspect]
     Route: 041
  4. REMICADE [Suspect]
     Route: 041
  5. REMICADE [Suspect]
     Route: 041
  6. REMICADE [Suspect]
     Route: 041
  7. REMICADE [Suspect]
     Route: 041
  8. REMICADE [Suspect]
     Route: 041
  9. REMICADE [Suspect]
     Indication: RHEUMATOID ARTHRITIS
     Route: 041
  10. XALATAN [Concomitant]
     Indication: GLAUCOMA
  11. ASPIRIN [Concomitant]
  12. PREDNISONE TAB [Concomitant]
  13. REMINYL [Concomitant]
     Indication: DEMENTIA ALZHEIMER'S TYPE
  14. TOPROL-XL [Concomitant]
  15. LASIX [Concomitant]
  16. MONOPRIL [Concomitant]
  17. POTASSIUM [Concomitant]
  18. PREMARIN [Concomitant]
  19. VITAMIN E [Concomitant]
  20. ELAVIL [Concomitant]
     Indication: NEUROPATHY
  21. HYDROXYCHLOROQUINE SULFATE [Concomitant]
  22. METHOTREXATE [Concomitant]
  23. LEFLUNOMIDE [Concomitant]

REACTIONS (4)
  - DEATH [None]
  - DEMENTIA ALZHEIMER'S TYPE [None]
  - LEPROSY [None]
  - VASCULITIC RASH [None]
